FAERS Safety Report 4830589-X (Version None)
Quarter: 2005Q4

REPORT INFORMATION
  Report Type: 
  Country: None (occurrence: None)
  Receive Date: 20051117
  Receipt Date: 20051102
  Transmission Date: 20060501
  Serious: Yes (Death)
  Sender: FDA-Public Use
  Company Number: FR-AVENTIS-200513628FR

PATIENT
  Age: 83 Year
  Sex: Female

DRUGS (11)
  1. LASILIX [Suspect]
     Indication: HYPERTENSION
     Route: 048
     Dates: start: 20050601, end: 20050901
  2. LASILIX [Suspect]
     Route: 048
     Dates: start: 20050901, end: 20050915
  3. TERALITHE [Suspect]
     Indication: BIPOLAR I DISORDER
     Route: 048
     Dates: end: 20050915
  4. OLMETEC                                 /GFR/ [Suspect]
     Indication: HYPERTENSION
     Route: 048
     Dates: end: 20050915
  5. PLAVIX [Concomitant]
     Route: 048
  6. TIAPRIDAL [Concomitant]
     Route: 048
  7. MEDIATENSYL [Concomitant]
     Route: 048
  8. DRIPTANE [Concomitant]
     Route: 048
  9. ALLOPURINOL [Concomitant]
  10. TEMERIT [Concomitant]
     Route: 048
  11. SYMBICORT [Concomitant]
     Dosage: DOSE UNIT: UNITS
     Route: 055

REACTIONS (14)
  - ANTIPSYCHOTIC DRUG LEVEL INCREASED [None]
  - COMMUNICATION DISORDER [None]
  - DEPRESSED LEVEL OF CONSCIOUSNESS [None]
  - DISTURBANCE IN ATTENTION [None]
  - FACIAL PALSY [None]
  - HYPERTONIA [None]
  - METABOLIC ENCEPHALOPATHY [None]
  - OBSTRUCTION [None]
  - ORAL INTAKE REDUCED [None]
  - PULMONARY EMBOLISM [None]
  - RENAL FAILURE ACUTE [None]
  - SHOCK [None]
  - SOMNOLENCE [None]
  - THERAPEUTIC AGENT TOXICITY [None]
